FAERS Safety Report 8288864-5 (Version None)
Quarter: 2012Q2

REPORT INFORMATION
  Report Type: 
  Country: None (occurrence: None)
  Receive Date: 20120411
  Receipt Date: 20120402
  Transmission Date: 20120825
  Serious: Yes (Other)
  Sender: FDA-Public Use
  Company Number: JPI-P-020234

PATIENT
  Age: 70 Year
  Sex: Female
  Weight: 88.905 kg

DRUGS (9)
  1. METHYLPHENIDATE HCL [Concomitant]
  2. ESIDRIX [Concomitant]
  3. OLMESARTAN MEDOXOMIL [Concomitant]
  4. PROTRIPTYLINE HCL [Concomitant]
  5. ESOMEPRAZOLE MAGNESIUM [Concomitant]
  6. ATORVASTATIN CALCIUM [Concomitant]
  7. XYREM [Suspect]
     Indication: CATAPLEXY
     Dosage: 4.5 GM (2.25 GM, 2 IN 1 D), ORAL (UNKNOWN), ORAL 9 GM (4.5 GM, 2 IN 1 D), ORAL
     Route: 048
     Dates: start: 20030109
  8. XYREM [Suspect]
     Indication: CATAPLEXY
     Dosage: 4.5 GM (2.25 GM, 2 IN 1 D), ORAL (UNKNOWN), ORAL 9 GM (4.5 GM, 2 IN 1 D), ORAL
     Route: 048
     Dates: start: 20060522
  9. PHENYTOIN [Concomitant]

REACTIONS (2)
  - DIABETES MELLITUS [None]
  - CONVULSION [None]
